FAERS Safety Report 14019368 (Version 1)
Quarter: 2017Q3

REPORT INFORMATION
  Report Type: Spontaneous
  Country: DE (occurrence: DE)
  Receive Date: 20170928
  Receipt Date: 20170928
  Transmission Date: 20171128
  Serious: Yes (Hospitalization, Other)
  Sender: FDA-Public Use
  Company Number: DE-BAYER-2017-182601

PATIENT
  Age: 23 Year
  Sex: Female

DRUGS (1)
  1. JAYDESS [Suspect]
     Active Substance: LEVONORGESTREL
     Indication: CONTRACEPTION
     Dosage: UNK
     Dates: start: 201606, end: 201706

REACTIONS (11)
  - Depression [Not Recovered/Not Resolved]
  - Extrasystoles [Not Recovered/Not Resolved]
  - Panic attack [Not Recovered/Not Resolved]
  - Hypokalaemia [Not Recovered/Not Resolved]
  - Headache [Not Recovered/Not Resolved]
  - Breast mass [Not Recovered/Not Resolved]
  - Nervousness [Not Recovered/Not Resolved]
  - Pelvic pain [Not Recovered/Not Resolved]
  - Mood swings [Not Recovered/Not Resolved]
  - Libido decreased [Not Recovered/Not Resolved]
  - Dysmenorrhoea [Not Recovered/Not Resolved]
